FAERS Safety Report 25120296 (Version 1)
Quarter: 2025Q1

REPORT INFORMATION
  Report Type: Spontaneous
  Country: CN (occurrence: CN)
  Receive Date: 20250325
  Receipt Date: 20250325
  Transmission Date: 20250408
  Serious: Yes (Hospitalization)
  Sender: SANDOZ
  Company Number: CN-002147023-NVSC2025CN047225

PATIENT
  Age: 67 Year
  Sex: Male
  Weight: 72 kg

DRUGS (6)
  1. FLUVASTATIN SODIUM [Suspect]
     Active Substance: FLUVASTATIN SODIUM
     Indication: Chronic kidney disease
     Dosage: 80 MG, QD
     Route: 048
     Dates: start: 20200114, end: 20250303
  2. FLUVASTATIN SODIUM [Suspect]
     Active Substance: FLUVASTATIN SODIUM
     Indication: Arteriosclerosis coronary artery
  3. FLUVASTATIN SODIUM [Suspect]
     Active Substance: FLUVASTATIN SODIUM
     Indication: Coronary artery stenosis
  4. FLUVASTATIN SODIUM [Suspect]
     Active Substance: FLUVASTATIN SODIUM
     Indication: Hypercholesterolaemia
  5. FLUVASTATIN SODIUM [Suspect]
     Active Substance: FLUVASTATIN SODIUM
     Indication: Hypertension
  6. FLUVASTATIN SODIUM [Suspect]
     Active Substance: FLUVASTATIN SODIUM
     Indication: Type 2 diabetes mellitus

REACTIONS (2)
  - Blood creatinine increased [Unknown]
  - Palpitations [Unknown]

NARRATIVE: CASE EVENT DATE: 20250227
